FAERS Safety Report 10887135 (Version 4)
Quarter: 2015Q2

REPORT INFORMATION
  Report Type: Spontaneous
  Country: PT (occurrence: PT)
  Receive Date: 20150304
  Receipt Date: 20150421
  Transmission Date: 20150821
  Serious: Yes (Other)
  Sender: FDA-Public Use
  Company Number: PT-B.I. PHARMACEUTICALS,INC./RIDGEFIELD-2015-BI-05701PO

PATIENT
  Age: 83 Year
  Sex: Female
  Weight: 55 kg

DRUGS (7)
  1. PRADAXA [Suspect]
     Active Substance: DABIGATRAN ETEXILATE MESYLATE
     Dosage: 150 MG
     Route: 065
     Dates: end: 20150201
  2. PRETERAX [Concomitant]
     Active Substance: INDAPAMIDE\PERINDOPRIL
     Indication: HYPERTENSION
     Dosage: 1 ANZ
     Route: 048
  3. PANTOC [Concomitant]
     Indication: PROPHYLAXIS
     Dosage: 20 MG
     Route: 048
  4. ELIQUIS [Concomitant]
     Active Substance: APIXABAN
     Indication: PRODUCT USED FOR UNKNOWN INDICATION
     Route: 065
     Dates: start: 20150202
  5. TRANXENE T-TAB [Concomitant]
     Active Substance: CLORAZEPATE DIPOTASSIUM
     Indication: ANXIETY
     Dosage: 5 MG
     Route: 048
  6. THYRAX [Concomitant]
     Active Substance: LEVOTHYROXINE
     Indication: HYPOTHYROIDISM
     Dosage: 0.025 MG
     Route: 048
  7. PRADAXA [Suspect]
     Active Substance: DABIGATRAN ETEXILATE MESYLATE
     Indication: ATRIAL FIBRILLATION
     Dosage: 220 MG
     Route: 048
     Dates: start: 20141004

REACTIONS (7)
  - Dyspepsia [Recovered/Resolved]
  - Gastric disorder [Not Recovered/Not Resolved]
  - Abdominal pain upper [Recovered/Resolved]
  - Oesophageal stenosis [Recovered/Resolved]
  - Dyspepsia [Not Recovered/Not Resolved]
  - Diarrhoea [Unknown]
  - Drug intolerance [Unknown]

NARRATIVE: CASE EVENT DATE: 201411
